FAERS Safety Report 5199530-7 (Version None)
Quarter: 2006Q4

REPORT INFORMATION
  Report Type: 
  Country: None (occurrence: None)
  Receive Date: 20061229
  Receipt Date: 20061221
  Transmission Date: 20070319
  Serious: Yes (Death, Hospitalization)
  Sender: FDA-Public Use
  Company Number: 2006SP004219

PATIENT
  Age: 32 Year
  Sex: Male
  Weight: 97 kg

DRUGS (2)
  1. PEG-INTRON [Suspect]
     Indication: HEPATITIS C
     Dosage: 150 MCG; QW; SC
     Route: 058
     Dates: start: 20060513, end: 20061005
  2. REBETOL [Suspect]
     Indication: HEPATITIS C
     Dosage: 1200 MG; QD; PO
     Route: 048
     Dates: start: 20060513, end: 20061005

REACTIONS (10)
  - APHASIA [None]
  - BRAIN HERNIATION [None]
  - BRAIN OEDEMA [None]
  - CAROTID ARTERY DISSECTION [None]
  - CAROTID ARTERY OCCLUSION [None]
  - CEREBRAL INFARCTION [None]
  - HEMIPARESIS [None]
  - ILL-DEFINED DISORDER [None]
  - INTRACRANIAL HAEMATOMA [None]
  - MASS [None]
